FAERS Safety Report 20721560 (Version 1)
Quarter: 2022Q2

REPORT INFORMATION
  Report Type: Report from Study
  Country: AR (occurrence: AR)
  Receive Date: 20220418
  Receipt Date: 20220418
  Transmission Date: 20220721
  Serious: Yes (Life-Threatening, Hospitalization, Other)
  Sender: FDA-Public Use
  Company Number: AR-NOVARTISPH-NVSC2022AR089567

PATIENT
  Sex: Female

DRUGS (2)
  1. ENTRESTO [Suspect]
     Active Substance: SACUBITRIL\VALSARTAN
     Indication: Cardiac failure
     Dosage: 50 MG, BID, (2 X 50 MG)
     Route: 065
     Dates: start: 2020, end: 2020
  2. ENTRESTO [Suspect]
     Active Substance: SACUBITRIL\VALSARTAN
     Dosage: 50 MG, BID, (2 X 50 MG)
     Route: 065
     Dates: start: 20220412

REACTIONS (4)
  - Pulmonary oedema [Recovering/Resolving]
  - Diabetes mellitus [Unknown]
  - Nervousness [Recovering/Resolving]
  - Product availability issue [Recovered/Resolved]

NARRATIVE: CASE EVENT DATE: 20200101
